FAERS Safety Report 8113961-4 (Version None)
Quarter: 2012Q1

REPORT INFORMATION
  Report Type: 
  Country: None (occurrence: None)
  Receive Date: 20120203
  Receipt Date: 20120130
  Transmission Date: 20120608
  Serious: Yes (Hospitalization, Other)
  Sender: FDA-Public Use
  Company Number: US-RB-036841-12

PATIENT
  Sex: Female

DRUGS (4)
  1. SUBOXONE [Suspect]
     Route: 060
     Dates: start: 20111101, end: 20111201
  2. SUBOXONE [Suspect]
     Dosage: TAPER TO 16 MG DAILY
     Route: 060
     Dates: start: 20111201, end: 20111230
  3. SUBOXONE [Suspect]
     Indication: DRUG DEPENDENCE
     Route: 060
     Dates: start: 20120120, end: 20120129
  4. SUBOXONE [Suspect]
     Indication: PAIN
     Route: 060
     Dates: start: 20120107, end: 20120119

REACTIONS (3)
  - TOOTHACHE [None]
  - PROCEDURAL PAIN [None]
  - OVARIAN CYST [None]
